FAERS Safety Report 23650356 (Version 1)
Quarter: 2024Q1

REPORT INFORMATION
  Report Type: Spontaneous
  Country: US (occurrence: None)
  Receive Date: 20240320
  Receipt Date: 20240320
  Transmission Date: 20240410
  Serious: No
  Sender: FDA-Public Use
  Company Number: US-ROCHE-3456164

PATIENT
  Age: 68 Year

DRUGS (1)
  1. VABYSMO [Suspect]
     Active Substance: FARICIMAB\FARICIMAB-SVOA
     Indication: Diabetic retinal oedema
     Route: 050

REACTIONS (7)
  - Uveitis [Unknown]
  - Retinal vasculitis [Unknown]
  - Visual impairment [Unknown]
  - Vasculitis [Unknown]
  - Eye inflammation [Unknown]
  - Haemorrhage [Unknown]
  - Retinal tear [Unknown]
